FAERS Safety Report 18056638 (Version 1)
Quarter: 2020Q3

REPORT INFORMATION
  Report Type: Report from Study
  Country: US (occurrence: US)
  Receive Date: 20200722
  Receipt Date: 20200722
  Transmission Date: 20201103
  Serious: Yes (Other)
  Sender: FDA-Public Use
  Company Number: NVSC2020US200187

PATIENT
  Sex: Female

DRUGS (1)
  1. AFINITOR [Suspect]
     Active Substance: EVEROLIMUS
     Indication: PRODUCT USED FOR UNKNOWN INDICATION
     Dosage: UNK
     Route: 065

REACTIONS (6)
  - Blood glucose increased [Unknown]
  - Diarrhoea [Unknown]
  - Thrombosis [Unknown]
  - Decreased appetite [Unknown]
  - Sleep apnoea syndrome [Unknown]
  - Weight decreased [Unknown]
